FAERS Safety Report 4571753-7 (Version None)
Quarter: 2005Q1

REPORT INFORMATION
  Report Type: 
  Country: None (occurrence: None)
  Receive Date: 20050207
  Receipt Date: 20050127
  Transmission Date: 20050727
  Serious: Yes (Other)
  Sender: FDA-Public Use
  Company Number: JP-MERCK-0502USA00304

PATIENT
  Age: 57 Year
  Sex: Female

DRUGS (5)
  1. PEPCID [Suspect]
     Route: 048
     Dates: end: 20040101
  2. ZOCOR [Concomitant]
     Route: 065
     Dates: end: 20040101
  3. MIZORIBINE [Concomitant]
     Route: 065
     Dates: start: 20000101, end: 20040101
  4. CORTICOSTEROIDS (UNSPECIFIED) [Suspect]
     Route: 065
     Dates: end: 20000101
  5. CYCLOSPORINE [Concomitant]
     Route: 065
     Dates: start: 20000101

REACTIONS (6)
  - ASEPTIC NECROSIS BONE [None]
  - MOUTH ULCERATION [None]
  - PEMPHIGOID [None]
  - PHARYNGITIS [None]
  - RENAL DISORDER [None]
  - RENAL IMPAIRMENT [None]
